FAERS Safety Report 25016134 (Version 2)
Quarter: 2025Q4

REPORT INFORMATION
  Report Type: Report from Study
  Country: EG (occurrence: EG)
  Receive Date: 20250227
  Receipt Date: 20251106
  Transmission Date: 20260117
  Serious: Yes (Hospitalization, Disabling, Other)
  Sender: ROCHE
  Company Number: EG-ROCHE-10000210490

PATIENT
  Age: 32 Year
  Sex: Female
  Weight: 67 kg

DRUGS (4)
  1. OCREVUS [Suspect]
     Active Substance: OCRELIZUMAB
     Indication: Multiple sclerosis
     Route: 042
     Dates: start: 20191005
  2. OCREVUS [Suspect]
     Active Substance: OCRELIZUMAB
     Route: 042
     Dates: start: 20200328
  3. SULFAMETHOXAZOLE\TRIMETHOPRIM [Suspect]
     Active Substance: SULFAMETHOXAZOLE\TRIMETHOPRIM
     Indication: Product used for unknown indication
     Route: 065
  4. INDERAL [Suspect]
     Active Substance: PROPRANOLOL HYDROCHLORIDE
     Indication: Product used for unknown indication
     Route: 065

REACTIONS (6)
  - Multiple sclerosis [Not Recovered/Not Resolved]
  - Nasopharyngitis [Recovered/Resolved]
  - Headache [Not Recovered/Not Resolved]
  - Trismus [Not Recovered/Not Resolved]
  - Renal impairment [Recovered/Resolved]
  - Vomiting [Recovered/Resolved]
